FAERS Safety Report 4704474-8 (Version None)
Quarter: 2005Q2

REPORT INFORMATION
  Report Type: 
  Country: None (occurrence: None)
  Receive Date: 20050630
  Receipt Date: 20050630
  Transmission Date: 20051028
  Serious: Yes (Other)
  Sender: FDA-Public Use
  Company Number: None

PATIENT
  Age: 33 Year
  Sex: Male
  Weight: 81.6475 kg

DRUGS (1)
  1. ZICAM [Suspect]
     Dates: start: 20040419, end: 20040423

REACTIONS (2)
  - AGEUSIA [None]
  - ANOSMIA [None]
